FAERS Safety Report 9242810 (Version 3)
Quarter: 2013Q2

REPORT INFORMATION
  Report Type: Spontaneous
  Country: US (occurrence: US)
  Receive Date: 20130419
  Receipt Date: 20130426
  Transmission Date: 20140414
  Serious: Yes (Death)
  Sender: FDA-Public Use
  Company Number: US-JNJFOC-20130410692

PATIENT
  Age: 69 Year
  Sex: Male

DRUGS (10)
  1. XARELTO [Suspect]
     Indication: CEREBROVASCULAR ACCIDENT PROPHYLAXIS
     Route: 048
     Dates: start: 20120912
  2. XARELTO [Suspect]
     Indication: ATRIAL FIBRILLATION
     Route: 048
     Dates: start: 20120912
  3. ASPIRIN [Suspect]
     Indication: PRODUCT USED FOR UNKNOWN INDICATION
     Route: 065
  4. CRESTOR [Concomitant]
     Route: 065
  5. FLOMAX [Concomitant]
     Route: 065
  6. VITAMIN C [Concomitant]
     Route: 065
  7. VITAMIN D [Concomitant]
     Route: 065
  8. LISINOPRIL [Concomitant]
     Route: 065
  9. WELLBUTRIN [Concomitant]
     Route: 065
  10. ZOLOFT [Concomitant]
     Route: 065

REACTIONS (2)
  - Haemorrhage intracranial [Fatal]
  - Blood pressure increased [Unknown]
